FAERS Safety Report 13615995 (Version 2)
Quarter: 2018Q1

REPORT INFORMATION
  Report Type: Spontaneous
  Country: FR (occurrence: FR)
  Receive Date: 20170606
  Receipt Date: 20180301
  Transmission Date: 20180508
  Serious: Yes (Other)
  Sender: FDA-Public Use
  Company Number: FR-BAYER-2017-100669

PATIENT
  Age: 32 Year
  Sex: Female
  Weight: 64 kg

DRUGS (2)
  1. MIRENA [Suspect]
     Active Substance: LEVONORGESTREL
     Indication: CONTRACEPTION
     Dosage: 20 MCG/24HR, CONT
     Route: 015
     Dates: start: 20161011
  2. MIRENA [Suspect]
     Active Substance: LEVONORGESTREL
     Indication: CONTRACEPTION

REACTIONS (9)
  - Weight increased [Not Recovered/Not Resolved]
  - Fatigue [Not Recovered/Not Resolved]
  - Irritability [Not Recovered/Not Resolved]
  - Abdominal pain lower [Recovered/Resolved]
  - Diffuse alopecia [Not Recovered/Not Resolved]
  - Migraine [Recovered/Resolved]
  - Abdominal distension [Recovering/Resolving]
  - Loss of libido [Recovering/Resolving]
  - Formication [Recovered/Resolved]

NARRATIVE: CASE EVENT DATE: 20170110
